FAERS Safety Report 5012163-8 (Version None)
Quarter: 2006Q2

REPORT INFORMATION
  Report Type: 
  Country: None (occurrence: None)
  Receive Date: 20060526
  Receipt Date: 20060516
  Transmission Date: 20061013
  Serious: Yes (Death, Congenital Anomaly)
  Sender: FDA-Public Use
  Company Number: US-ABBOTT-06P-163-0333627-00

PATIENT

DRUGS (2)
  1. ABBOKINASE [Suspect]
     Indication: DRUG EXPOSURE DURING PREGNANCY
  2. ABBOKINASE [Suspect]

REACTIONS (2)
  - CHROMOSOME ABNORMALITY [None]
  - DRUG EXPOSURE DURING PREGNANCY [None]
